FAERS Safety Report 5386710-0 (Version None)
Quarter: 2007Q3

REPORT INFORMATION
  Report Type: 
  Country: None (occurrence: None)
  Receive Date: 20070713
  Receipt Date: 20070702
  Transmission Date: 20080115
  Serious: Yes (Other)
  Sender: FDA-Public Use
  Company Number: US-ROCHE-505111

PATIENT
  Sex: Female

DRUGS (1)
  1. XELODA [Suspect]
     Route: 065
     Dates: start: 20060101, end: 20070401

REACTIONS (2)
  - BONE NEOPLASM MALIGNANT [None]
  - PALMAR-PLANTAR ERYTHRODYSAESTHESIA SYNDROME [None]
